FAERS Safety Report 9397645 (Version 1)
Quarter: 2013Q3

REPORT INFORMATION
  Report Type: Spontaneous
  Country: MX (occurrence: MX)
  Receive Date: 20130712
  Receipt Date: 20130712
  Transmission Date: 20140515
  Serious: Yes (Other)
  Sender: FDA-Public Use
  Company Number: MX-ROCHE-1248014

PATIENT
  Age: 60 Year
  Sex: Male

DRUGS (2)
  1. MIRCERA [Suspect]
     Indication: PRODUCT USED FOR UNKNOWN INDICATION
     Route: 058
     Dates: start: 201206, end: 20130610
  2. ARANESP [Concomitant]
     Route: 058

REACTIONS (2)
  - Haemoglobin decreased [Recovered/Resolved]
  - Fatigue [Unknown]
